FAERS Safety Report 16383079 (Version 1)
Quarter: 2019Q2

REPORT INFORMATION
  Report Type: Spontaneous
  Country: US (occurrence: US)
  Receive Date: 20190426
  Receipt Date: 20190426
  Transmission Date: 20190711
  Serious: No
  Sender: FDA-Public Use
  Company Number: None

PATIENT
  Age: 6 Year
  Sex: Male

DRUGS (1)
  1. ORKAMBI [Suspect]
     Active Substance: IVACAFTOR\LUMACAFTOR
     Dates: start: 20190419

REACTIONS (5)
  - Complication associated with device [None]
  - Headache [None]
  - Abnormal behaviour [None]
  - Dyspnoea [None]
  - Sensory disturbance [None]

NARRATIVE: CASE EVENT DATE: 20190426
